FAERS Safety Report 14368237 (Version 1)
Quarter: 2018Q1

REPORT INFORMATION
  Report Type: Other
  Country: CA (occurrence: CA)
  Receive Date: 20180109
  Receipt Date: 20180109
  Transmission Date: 20180509
  Serious: Yes (Life-Threatening, Hospitalization)
  Sender: FDA-Public Use
  Company Number: CA-ALSI-201700481

PATIENT
  Sex: Female

DRUGS (1)
  1. 100% OXYGEN [Suspect]
     Active Substance: OXYGEN
     Indication: ANAESTHESIA PROCEDURE
     Route: 055

REACTIONS (3)
  - Intentional product misuse [Recovering/Resolving]
  - Thermal burn [Recovering/Resolving]
  - Accident [Recovering/Resolving]
